FAERS Safety Report 5201685-2 (Version None)
Quarter: 2006Q4

REPORT INFORMATION
  Report Type: 
  Country: None (occurrence: None)
  Receive Date: 20061010
  Receipt Date: 20060120
  Transmission Date: 20070319
  Serious: Yes (Hospitalization)
  Sender: FDA-Public Use
  Company Number: 2005-BP-16114BP

PATIENT
  Sex: Female

DRUGS (9)
  1. CATAPRES [Suspect]
     Indication: BLOOD PRESSURE
     Dosage: 0.3 MG (7.5 MG, ONE PATCH Q WEEK), TO
     Dates: start: 20050404
  2. CATAPRES [Suspect]
     Indication: HYPERTENSION
     Dosage: 0.3 MG (7.5 MG, ONE PATCH Q WEEK), TO
     Dates: start: 20050404
  3. CATAPRES [Suspect]
  4. PLAVIX [Concomitant]
  5. GLUCOSAMINE (GLUCOSAMINE) [Concomitant]
  6. ASPIRIN [Concomitant]
  7. OMEGA 3 (FISH OIL0 [Concomitant]
  8. CITRUCEL (METHYLCELLULOSE) [Concomitant]
  9. ALLERGY SHOTS [Concomitant]

REACTIONS (1)
  - BLOOD PRESSURE [None]
